FAERS Safety Report 8385304 (Version 2)
Quarter: 2013Q2

REPORT INFORMATION
  Report Type: Not Available
  Country: FR (occurrence: FR)
  Receive Date: 20120110
  Receipt Date: 20130617
  Transmission Date: 20140414
  Serious: Yes (Other)
  Sender: FDA-Public Use
  Company Number: FR-RB-036142-12

PATIENT
  Sex: Female

DRUGS (3)
  1. SUBUTEX [Suspect]
     Indication: PRODUCT USED FOR UNKNOWN INDICATION
     Dosage: UNKNOWN DOSAGE DETAILS
     Route: 064
     Dates: start: 200510, end: 20060111
  2. RIVOTRIL [Suspect]
     Indication: PRODUCT USED FOR UNKNOWN INDICATION
     Dosage: UNKNOWN DOSING DETAILS
     Route: 064
     Dates: start: 200503, end: 20060111
  3. LEXOMIL [Suspect]
     Indication: PRODUCT USED FOR UNKNOWN INDICATION
     Dosage: DOSING DETAILS UNKNOWN
     Route: 064
     Dates: start: 200503, end: 200510

REACTIONS (4)
  - Drug withdrawal syndrome neonatal [Recovered/Resolved]
  - Growth retardation [Recovered/Resolved]
  - Abnormal behaviour [Not Recovered/Not Resolved]
  - Foetal exposure during pregnancy [Recovered/Resolved]
